FAERS Safety Report 7238078-2 (Version None)
Quarter: 2011Q1

REPORT INFORMATION
  Report Type: 
  Country: None (occurrence: None)
  Receive Date: 20110121
  Receipt Date: 20110114
  Transmission Date: 20110831
  Serious: Yes (Hospitalization)
  Sender: FDA-Public Use
  Company Number: B0693722A

PATIENT
  Sex: Female

DRUGS (17)
  1. BISOPROLOL [Concomitant]
     Dosage: 2.5MG AT NIGHT
     Route: 065
  2. COUMADIN [Concomitant]
     Dosage: 3MG IN THE MORNING
     Route: 065
  3. TARDYFERON [Concomitant]
     Dosage: 1UNIT THREE TIMES PER DAY
     Route: 065
  4. PLAVIX [Concomitant]
     Dosage: 1UNIT IN THE MORNING
     Route: 065
  5. ACUPAN [Concomitant]
     Dosage: 1AMP FOUR TIMES PER DAY
     Route: 065
  6. IMOVANE [Concomitant]
     Dosage: 1UNIT PER DAY
     Route: 065
  7. AMLOR [Concomitant]
     Dosage: 5MG IN THE MORNING
     Route: 065
  8. CORDARONE [Concomitant]
  9. PARACETAMOL [Concomitant]
     Route: 065
  10. LEVOTHYROX [Concomitant]
     Dosage: 100MCG IN THE MORNING
     Route: 065
  11. FOLIC ACID [Concomitant]
     Dosage: 5MG PER DAY
     Route: 065
  12. CORDARONE [Concomitant]
     Dosage: 200MG IN THE MORNING
     Route: 065
  13. TAHOR [Concomitant]
     Dosage: 10MG AT NIGHT
     Route: 065
  14. ANTICOAGULANTS (UNSPECIFIED) [Concomitant]
  15. AUGMENTIN [Suspect]
     Indication: INFECTED SKIN ULCER
     Dosage: 500MG TWICE PER DAY
     Route: 048
     Dates: start: 20100730, end: 20100801
  16. NEXIUM [Concomitant]
     Dosage: 20MG PER DAY
     Route: 065
  17. FORLAX [Concomitant]
     Route: 065

REACTIONS (3)
  - GENERAL PHYSICAL HEALTH DETERIORATION [None]
  - CLOSTRIDIUM DIFFICILE COLITIS [None]
  - DIARRHOEA HAEMORRHAGIC [None]
